FAERS Safety Report 5512329-4 (Version None)
Quarter: 2007Q4

REPORT INFORMATION
  Report Type: 
  Country: None (occurrence: None)
  Receive Date: 20071108
  Receipt Date: 20071026
  Transmission Date: 20080405
  Serious: Yes (Hospitalization)
  Sender: FDA-Public Use
  Company Number: 2007334316

PATIENT
  Age: 23 Year
  Sex: Female

DRUGS (5)
  1. BENADRYL [Suspect]
     Indication: SUICIDE ATTEMPT
     Dosage: 10 PILLS, ORAL
     Route: 048
     Dates: start: 20030901
  2. EXCEDRIN P.M. (DIPHENHYDRAMINE CITRATE, PARACETAMOL) [Suspect]
     Indication: SUICIDE ATTEMPT
     Dosage: 10 PILLS, ORAL
     Route: 048
     Dates: start: 20030901
  3. CELEXA [Suspect]
     Indication: SUICIDE ATTEMPT
     Dosage: 3 PILLS 20 MG, ORAL
     Route: 048
     Dates: start: 20030901
  4. ALCOHOL (ALCOHOL) [Suspect]
     Indication: SUICIDE ATTEMPT
     Dosage: UP TO SIX BEERS, ORAL
     Route: 048
     Dates: start: 20030901
  5. CELEXA [Concomitant]

REACTIONS (11)
  - DISEASE RECURRENCE [None]
  - DIZZINESS [None]
  - DYSTHYMIC DISORDER [None]
  - FATIGUE [None]
  - FEELING OF DESPAIR [None]
  - FLAT AFFECT [None]
  - JUDGEMENT IMPAIRED [None]
  - MAJOR DEPRESSION [None]
  - MULTIPLE DRUG OVERDOSE INTENTIONAL [None]
  - SUICIDE ATTEMPT [None]
  - VOMITING [None]
